FAERS Safety Report 10146532 (Version 1)
Quarter: 2014Q2

REPORT INFORMATION
  Report Type: Spontaneous
  Country: FR (occurrence: FR)
  Receive Date: 20140501
  Receipt Date: 20140501
  Transmission Date: 20141212
  Serious: Yes (Other)
  Sender: FDA-Public Use
  Company Number: FR-ROXANE LABORATORIES, INC.-2014-RO-00681RO

PATIENT
  Age: 16 Year
  Sex: Male

DRUGS (5)
  1. RISPERIDONE [Suspect]
     Indication: SCHIZOPHRENIA
     Route: 048
  2. LITHIUM CARBONATE [Suspect]
     Indication: SCHIZOPHRENIA
     Dosage: 250 MG
     Route: 065
  3. CLONAZEPAM [Suspect]
     Indication: SCHIZOPHRENIA
     Route: 048
  4. CLOZAPINE [Suspect]
     Indication: SCHIZOPHRENIA
     Dosage: 250 MG
     Route: 065
  5. LORAZEPAM [Suspect]
     Indication: SCHIZOPHRENIA
     Dosage: 5 MG
     Route: 042

REACTIONS (6)
  - Catatonia [Recovered/Resolved]
  - Anorexia nervosa [Unknown]
  - Sedation [Unknown]
  - Fatigue [Unknown]
  - Parkinsonism [Unknown]
  - Abnormal loss of weight [Unknown]
